FAERS Safety Report 8675619 (Version 2)
Quarter: 2012Q4

REPORT INFORMATION
  Report Type: 
  Country: US (occurrence: US)
  Receive Date: 20120720
  Receipt Date: 20120911
  Transmission Date: 20130627
  Serious: Yes (Congenital Anomaly)
  Sender: FDA-Public Use
  Company Number: US-GLAXOSMITHKLINE-A0985283A

PATIENT
  Age: 0 Year
  Sex: Male
  Weight: 4.3 kg

DRUGS (1)
  1. PAXIL [Suspect]
     Indication: DEPRESSION
     Route: 064

REACTIONS (3)
  - Spina bifida [Unknown]
  - Neural tube defect [Unknown]
  - Foetal exposure during pregnancy [Unknown]
